FAERS Safety Report 16463850 (Version 1)
Quarter: 2019Q2

REPORT INFORMATION
  Report Type: Spontaneous
  Country: CA (occurrence: CA)
  Receive Date: 20190621
  Receipt Date: 20190621
  Transmission Date: 20190711
  Serious: Yes (Other)
  Sender: FDA-Public Use
  Company Number: CA-PFIZER INC-2019259647

PATIENT
  Sex: Female

DRUGS (36)
  1. DETROL LA [Concomitant]
     Active Substance: TOLTERODINE TARTRATE
     Dosage: UNK
  2. DICLOFENAC [Concomitant]
     Active Substance: DICLOFENAC
     Dosage: UNK
  3. JAMP MAGNESIUM [Concomitant]
     Dosage: UNK
  4. PATANOL [Concomitant]
     Active Substance: OLOPATADINE HYDROCHLORIDE
     Dosage: UNK
  5. FLOVENT [Concomitant]
     Active Substance: FLUTICASONE PROPIONATE
     Dosage: UNK
  6. PMS-SALBUTAMOL [Concomitant]
     Dosage: UNK
  7. TEVA RISEDRONATE [Concomitant]
     Active Substance: RISEDRONATE SODIUM
     Dosage: UNK
  8. APO-DOMPERIDONE [Concomitant]
     Active Substance: DOMPERIDONE MALEATE
     Dosage: UNK
  9. LOSEC [Concomitant]
     Active Substance: OMEPRAZOLE
     Dosage: UNK
  10. MYLAN BECLO AQ [Concomitant]
     Dosage: UNK
  11. PMS-IPRATROPIUM [Concomitant]
     Dosage: UNK
  12. REACTINE [CETIRIZINE HYDROCHLORIDE] [Concomitant]
     Active Substance: CETIRIZINE HYDROCHLORIDE
     Dosage: UNK
  13. TARO-TERCONAZOLE [Concomitant]
     Dosage: UNK
  14. HYDERM [HYDROCORTISONE] [Concomitant]
     Dosage: UNK
  15. TOPICORT [Concomitant]
     Active Substance: DESOXIMETASONE
     Dosage: UNK
  16. BETADERM [BETAMETHASONE] [Concomitant]
     Dosage: UNK
  17. GRAVOL [Concomitant]
     Active Substance: DIMENHYDRINATE
     Dosage: UNK
  18. ATIVAN [Concomitant]
     Active Substance: LORAZEPAM
     Dosage: UNK
  19. COLESTID [Concomitant]
     Active Substance: COLESTIPOL HYDROCHLORIDE
     Dosage: UNK
  20. HYDROMORPH CONTIN [Concomitant]
     Active Substance: HYDROMORPHONE
     Dosage: UNK
  21. JAMP-CALCIUM + VITAMIN D [Concomitant]
     Dosage: UNK
  22. PMS-HYDROMORPHONE [Concomitant]
     Active Substance: HYDROMORPHONE HYDROCHLORIDE
     Dosage: UNK
  23. PULMICORT TURBUHALER [Concomitant]
     Active Substance: BUDESONIDE
     Dosage: UNK
  24. ATROVENT HFA [Concomitant]
     Active Substance: IPRATROPIUM BROMIDE
     Dosage: UNK
  25. DIPHENHYDRAMINE. [Concomitant]
     Active Substance: DIPHENHYDRAMINE
     Dosage: UNK
  26. DOXYCYCLINE. [Concomitant]
     Active Substance: DOXYCYCLINE
     Dosage: UNK
  27. BENADRYL ALLERGY NIGHTTIME [Concomitant]
     Dosage: UNK
  28. SOLU-MEDROL [Concomitant]
     Active Substance: METHYLPREDNISOLONE SODIUM SUCCINATE
     Dosage: UNK
  29. NORVASC [Suspect]
     Active Substance: AMLODIPINE BESYLATE
     Dosage: 5 MG, UNK
     Route: 065
  30. AMOXICILLIN. [Concomitant]
     Active Substance: AMOXICILLIN
     Dosage: UNK
  31. AVAPRO [Concomitant]
     Active Substance: IRBESARTAN
     Dosage: UNK
  32. DEMEROL [Concomitant]
     Active Substance: MEPERIDINE HYDROCHLORIDE
     Dosage: UNK
  33. EPIPEN [Concomitant]
     Active Substance: EPINEPHRINE
     Dosage: UNK
  34. MEDROL [Concomitant]
     Active Substance: METHYLPREDNISOLONE
     Dosage: UNK
  35. SYMBICORT [Concomitant]
     Active Substance: BUDESONIDE\FORMOTEROL FUMARATE DIHYDRATE
     Dosage: UNK
  36. VENTOLIN [Concomitant]
     Active Substance: ALBUTEROL SULFATE
     Dosage: UNK

REACTIONS (16)
  - Dry mouth [Recovered/Resolved]
  - Erythema [Recovered/Resolved]
  - Eye irritation [Recovered/Resolved]
  - Pruritus [Recovered/Resolved]
  - Urticaria [Recovered/Resolved]
  - Feeling hot [Recovered/Resolved]
  - Headache [Recovered/Resolved]
  - Joint swelling [Recovered/Resolved]
  - Dysphonia [Recovered/Resolved]
  - Dysuria [Recovered/Resolved]
  - Fatigue [Recovered/Resolved]
  - Tremor [Recovered/Resolved]
  - Lacrimation increased [Recovered/Resolved]
  - Muscle spasms [Recovered/Resolved]
  - Peripheral swelling [Recovered/Resolved]
  - Dizziness [Recovered/Resolved]
